FAERS Safety Report 7544163-8 (Version None)
Quarter: 2011Q2

REPORT INFORMATION
  Report Type: 
  Country: None (occurrence: None)
  Receive Date: 20110613
  Receipt Date: 20070111
  Transmission Date: 20111010
  Serious: Yes (Death, Hospitalization)
  Sender: FDA-Public Use
  Company Number: PHMT2007CA00501

PATIENT
  Sex: Male

DRUGS (1)
  1. SANDOSTATIN LAR [Suspect]
     Indication: HEPATIC NEOPLASM MALIGNANT
     Dosage: 20 MG, QMO
     Dates: start: 20061212, end: 20061212

REACTIONS (2)
  - NEOPLASM MALIGNANT [None]
  - PHLEBITIS [None]
